FAERS Safety Report 10598579 (Version 1)
Quarter: 2014Q4

REPORT INFORMATION
  Report Type: Spontaneous
  Country: FR (occurrence: FR)
  Receive Date: 20141121
  Receipt Date: 20141121
  Transmission Date: 20150529
  Serious: Yes (Death, Other)
  Sender: FDA-Public Use
  Company Number: FR-BAYER-2014-171751

PATIENT
  Age: 45 Year
  Sex: Female
  Weight: 55 kg

DRUGS (1)
  1. MIRENA [Suspect]
     Active Substance: LEVONORGESTREL
     Dosage: 20 MCG/24HR, CONT
     Route: 015

REACTIONS (8)
  - Hot flush [Fatal]
  - Adrenal gland cancer [Fatal]
  - Amenorrhoea [Fatal]
  - Acne [Fatal]
  - Hair growth abnormal [Fatal]
  - Breast atrophy [Fatal]
  - Dysphonia [Fatal]
  - Hyperhidrosis [Fatal]
